FAERS Safety Report 10278592 (Version 3)
Quarter: 2014Q3

REPORT INFORMATION
  Report Type: Spontaneous
  Country: IT (occurrence: IT)
  Receive Date: 20140704
  Receipt Date: 20140827
  Transmission Date: 20150326
  Serious: Yes (Life-Threatening)
  Sender: FDA-Public Use
  Company Number: IT-BRISTOL-MYERS SQUIBB COMPANY-21093455

PATIENT
  Age: 87 Year
  Sex: Male

DRUGS (7)
  1. CONGESCOR [Concomitant]
     Active Substance: BISOPROLOL
  2. CARDIOASPIRIN [Suspect]
     Active Substance: ASPIRIN
     Indication: CORONARY ARTERIAL STENT INSERTION
     Dosage: INTER-17JUN14
     Route: 048
     Dates: start: 20140401
  3. CRESTOR [Concomitant]
     Active Substance: ROSUVASTATIN CALCIUM
  4. LASIX [Concomitant]
     Active Substance: FUROSEMIDE
  5. COUMADIN [Suspect]
     Active Substance: WARFARIN SODIUM
     Indication: ATRIAL FIBRILLATION
     Dosage: INTER-17JUN14
     Route: 048
     Dates: start: 20140401
  6. TRIATEC [Concomitant]
     Active Substance: RAMIPRIL
  7. MINITRAN [Concomitant]
     Active Substance: NITROGLYCERIN

REACTIONS (4)
  - Acute myocardial infarction [Recovering/Resolving]
  - Gastrointestinal haemorrhage [Recovering/Resolving]
  - Hypotension [Recovering/Resolving]
  - Anaemia [Recovering/Resolving]

NARRATIVE: CASE EVENT DATE: 20140617
